FAERS Safety Report 5323965-2 (Version None)
Quarter: 2007Q2

REPORT INFORMATION
  Report Type: 
  Country: None (occurrence: None)
  Receive Date: 20070221
  Receipt Date: 20060119
  Transmission Date: 20071010
  Serious: Yes (Other)
  Sender: FDA-Public Use
  Company Number: PHEH2006US01158

PATIENT

DRUGS (1)
  1. DIOVAN [Suspect]
     Dosage: ORAL
     Route: 048

REACTIONS (1)
  - BLOOD POTASSIUM INCREASED [None]
